FAERS Safety Report 18604122 (Version 1)
Quarter: 2020Q4

REPORT INFORMATION
  Report Type: Spontaneous
  Country: CH (occurrence: CH)
  Receive Date: 20201211
  Receipt Date: 20201211
  Transmission Date: 20210114
  Serious: Yes (Death, Hospitalization)
  Sender: FDA-Public Use
  Company Number: CH-ROCHE-2730256

PATIENT
  Age: 62 Year
  Sex: Female
  Weight: 71 kg

DRUGS (4)
  1. CARBOPLATIN;ETOPOSIDE [Concomitant]
     Indication: BRONCHIAL CARCINOMA
  2. TECENTRIQ [Suspect]
     Active Substance: ATEZOLIZUMAB
     Indication: METASTATIC BRONCHIAL CARCINOMA
     Route: 041
     Dates: start: 20191218, end: 20200108
  3. ASPIRIN CARDIO [Concomitant]
     Active Substance: ASPIRIN
  4. METOPROLOL. [Concomitant]
     Active Substance: METOPROLOL

REACTIONS (1)
  - Guillain-Barre syndrome [Fatal]

NARRATIVE: CASE EVENT DATE: 202002
